FAERS Safety Report 6084225-8 (Version None)
Quarter: 2009Q1

REPORT INFORMATION
  Report Type: 
  Country: None (occurrence: None)
  Receive Date: 20090219
  Receipt Date: 20090211
  Transmission Date: 20090719
  Serious: Yes (Hospitalization)
  Sender: FDA-Public Use
  Company Number: AU-ROCHE-600247

PATIENT
  Sex: Male
  Weight: 77 kg

DRUGS (5)
  1. CAPECITABINE [Suspect]
     Indication: COLON CANCER
     Dosage: 2000MG IN THE MORNING AND 2500MG IN THE EVENING.
     Route: 048
     Dates: start: 20081128
  2. BEVACIZUMAB [Suspect]
     Indication: COLON CANCER
     Dosage: FORM REPORTED AS INFUSION
     Route: 042
     Dates: start: 20081128
  3. NITRAZEPAM [Concomitant]
     Indication: INSOMNIA
     Route: 048
  4. ZANTAC [Concomitant]
     Route: 048
  5. ZYPREXA [Concomitant]
     Route: 048

REACTIONS (1)
  - PERICARDITIS [None]
